FAERS Safety Report 10219866 (Version 2)
Quarter: 2014Q2

REPORT INFORMATION
  Report Type: Report from Study
  Country: JP (occurrence: JP)
  Receive Date: 20140605
  Receipt Date: 20140625
  Transmission Date: 20141212
  Serious: Yes (Hospitalization)
  Sender: FDA-Public Use
  Company Number: JP-EISAI INC-E2020-14121-CLI-JP

PATIENT
  Age: 79 Year
  Sex: Female
  Weight: 55 kg

DRUGS (15)
  1. DONEPEZIL [Suspect]
     Indication: DEMENTIA ALZHEIMER^S TYPE
     Dosage: DOUBLE BLIND
     Route: 048
     Dates: start: 20131227, end: 20140123
  2. DONEPEZIL [Suspect]
     Dosage: DOUBLE BLIND
     Route: 048
     Dates: start: 20140124, end: 20140502
  3. SEISHINRENSHIIN [Suspect]
     Indication: HYPERTONIC BLADDER
     Route: 048
  4. MEVALOTIN [Suspect]
     Indication: DYSLIPIDAEMIA
     Route: 048
  5. JANUVIA [Suspect]
     Indication: TYPE 2 DIABETES MELLITUS
     Route: 048
  6. EVAMYL [Suspect]
     Indication: DEMENTIA ALZHEIMER^S TYPE
     Route: 048
  7. MEMARY [Concomitant]
  8. METGLUCO [Concomitant]
  9. AMLODIPINE [Concomitant]
  10. RINDERON [Concomitant]
  11. CRAVIT [Concomitant]
  12. ZANTAC [Concomitant]
  13. CEREKINON [Concomitant]
  14. DICLOD [Concomitant]
  15. TETRAMIDE [Concomitant]

REACTIONS (1)
  - Interstitial lung disease [Recovering/Resolving]
